FAERS Safety Report 24036778 (Version 1)
Quarter: 2024Q3

REPORT INFORMATION
  Report Type: Spontaneous
  Country: US (occurrence: US)
  Receive Date: 20240701
  Receipt Date: 20240701
  Transmission Date: 20241016
  Serious: Yes (Other)
  Sender: Sintetica
  Company Number: US-SINTETICA US LLC-US-SIN-2024-00006

PATIENT
  Age: 62 Year
  Sex: Female

DRUGS (2)
  1. LIDOCAINE HYDROCHLORIDE [Suspect]
     Active Substance: LIDOCAINE HYDROCHLORIDE
     Indication: Skin cosmetic procedure
     Dosage: 2 CCS OF 2% LIDOCAINE WITHOUT EPINEPHRINE
  2. POLYLACTIDE, L- [Concomitant]
     Active Substance: POLYLACTIDE, L-
     Indication: Skin cosmetic procedure
     Dosage: PLLA WAS RECONSTITUTED WITH 7 CCS OF STERILE WATER

REACTIONS (1)
  - Anaphylactic reaction [Recovered/Resolved]
